FAERS Safety Report 5801373-5 (Version None)
Quarter: 2008Q3

REPORT INFORMATION
  Report Type: 
  Country: None (occurrence: None)
  Receive Date: 20080703
  Receipt Date: 20080703
  Transmission Date: 20090109
  Serious: Yes (Other)
  Sender: FDA-Public Use
  Company Number: None

PATIENT
  Sex: Female
  Weight: 55.7924 kg

DRUGS (1)
  1. EVISTA [Suspect]
     Indication: OSTEOPOROSIS
     Dosage: 60 MG 1 PER DAY
     Dates: start: 20071224, end: 20080602

REACTIONS (7)
  - DEPRESSION [None]
  - GAIT DISTURBANCE [None]
  - INSOMNIA [None]
  - LIGAMENT DISORDER [None]
  - MUSCLE SPASMS [None]
  - PAIN IN EXTREMITY [None]
  - SUICIDAL IDEATION [None]
